FAERS Safety Report 15090428 (Version 1)
Quarter: 2018Q2

REPORT INFORMATION
  Report Type: Spontaneous
  Country: CN (occurrence: CN)
  Receive Date: 20180629
  Receipt Date: 20180629
  Transmission Date: 20180711
  Serious: Yes (Other)
  Sender: FDA-Public Use
  Company Number: CN-GLAXOSMITHKLINE-CN2018GSK113114

PATIENT
  Age: 62 Year
  Sex: Male

DRUGS (1)
  1. HEPTODIN [Suspect]
     Active Substance: LAMIVUDINE
     Indication: HEPATITIS B
     Dosage: 1 DF(TABLET), QD
     Route: 048
     Dates: start: 2004

REACTIONS (4)
  - Disease recurrence [Unknown]
  - Hepatic fibrosis [Unknown]
  - Condition aggravated [Unknown]
  - Hepatic function abnormal [Unknown]
